FAERS Safety Report 4443822-3 (Version None)
Quarter: 2004Q3

REPORT INFORMATION
  Report Type: 
  Country: None (occurrence: None)
  Receive Date: 20040729
  Receipt Date: 20031010
  Transmission Date: 20050211
  Serious: Yes (Hospitalization, Other)
  Sender: FDA-Public Use
  Company Number: USA-2003-0012261

PATIENT
  Sex: Female
  Weight: 80.3 kg

DRUGS (5)
  1. MS CONTIN [Suspect]
     Indication: PAIN
     Dosage: 100 MG, TID, ORAL
     Route: 048
     Dates: start: 20011101, end: 20011216
  2. PHENERGAN ^NATRAPHARM^ [Concomitant]
  3. TOPAMAX [Concomitant]
  4. AMBIEN [Concomitant]
  5. MEXITIL [Concomitant]

REACTIONS (11)
  - BURNING SENSATION [None]
  - DECREASED APPETITE [None]
  - DEPRESSION [None]
  - DRUG ABUSER [None]
  - DRUG DEPENDENCE [None]
  - DRUG WITHDRAWAL SYNDROME [None]
  - NAUSEA [None]
  - OEDEMA PERIPHERAL [None]
  - PARAESTHESIA [None]
  - POLLAKIURIA [None]
  - VOMITING [None]
